FAERS Safety Report 8942447 (Version 1)
Quarter: 2012Q4

REPORT INFORMATION
  Report Type: Report from Study
  Country: JP (occurrence: JP)
  Receive Date: 20121204
  Receipt Date: 20121204
  Transmission Date: 20130627
  Serious: Yes (Other)
  Sender: FDA-Public Use
  Company Number: JP-ASTELLAS-2012JP011169

PATIENT
  Age: 81 Year
  Sex: Female

DRUGS (7)
  1. MIRABEGRON [Suspect]
     Indication: HYPERTONIC BLADDER
     Dosage: 50 mg, UID/QD
     Route: 048
     Dates: start: 20120806, end: 20121011
  2. URGENT [Concomitant]
     Indication: HYPERTONIC BLADDER
     Dosage: 2 mg, Unknown/D
     Route: 048
  3. EC DOPARL [Concomitant]
     Indication: PARKINSON^S DISEASE
     Dosage: 1 DF, Unknown/D
     Route: 048
  4. ETIZOLAM [Concomitant]
     Indication: INSOMNIA
     Dosage: 0.5 mg, Unknown/D
     Route: 048
  5. ROZEREM [Concomitant]
     Indication: INSOMNIA
     Dosage: 8 mg, UID/QD
     Route: 048
  6. DONEPEZIL HYDROCHLORIDE [Concomitant]
     Indication: DEMENTIA
     Dosage: 5 mg, Unknown/D
     Route: 048
  7. HALCION [Concomitant]
     Indication: INSOMNIA
     Dosage: 0.25 mg, Unknown/D
     Route: 048

REACTIONS (1)
  - Dementia [Unknown]
